FAERS Safety Report 23075767 (Version 1)
Quarter: 2023Q4

REPORT INFORMATION
  Report Type: Report from Study
  Country: CA (occurrence: CA)
  Receive Date: 20231017
  Receipt Date: 20231017
  Transmission Date: 20240109
  Serious: Yes (Other)
  Sender: FDA-Public Use
  Company Number: CA-AstraZeneca-2023A231529

PATIENT
  Sex: Female
  Weight: 64 kg

DRUGS (1)
  1. ENHERTU [Suspect]
     Active Substance: FAM-TRASTUZUMAB DERUXTECAN-NXKI
     Indication: Breast cancer metastatic
     Dosage: 343.4 MG, ONCE EVERY 3 WK
     Route: 042
     Dates: start: 20230825

REACTIONS (2)
  - Tachycardia [Unknown]
  - Contusion [Unknown]
